FAERS Safety Report 25017388 (Version 2)
Quarter: 2025Q1

REPORT INFORMATION
  Report Type: Report from Study
  Country: US (occurrence: US)
  Receive Date: 20250227
  Receipt Date: 20250328
  Transmission Date: 20250408
  Serious: Yes (Other)
  Sender: EXELIXIS
  Company Number: US-EXELIXIS-EXL-2024-002204

PATIENT
  Sex: Male

DRUGS (2)
  1. CABOMETYX [Suspect]
     Active Substance: CABOZANTINIB S-MALATE
     Indication: Renal cancer
     Dosage: 20 MG, QD
     Route: 048
     Dates: start: 202302
  2. CABOMETYX [Suspect]
     Active Substance: CABOZANTINIB S-MALATE
     Indication: Prostate cancer

REACTIONS (16)
  - Neuropathy peripheral [Unknown]
  - Parkinson^s disease [Unknown]
  - Mental impairment [Unknown]
  - Choking [Unknown]
  - Dementia [Unknown]
  - Malignant neoplasm progression [Unknown]
  - Dysphonia [Unknown]
  - Decreased appetite [Unknown]
  - Weight decreased [Unknown]
  - Fatigue [Unknown]
  - General physical health deterioration [Unknown]
  - Superficial injury of eye [Unknown]
  - Gait disturbance [Unknown]
  - Lip disorder [Unknown]
  - Rhinorrhoea [Unknown]
  - Restless legs syndrome [Unknown]
